FAERS Safety Report 6726025-9 (Version None)
Quarter: 2010Q2

REPORT INFORMATION
  Report Type: 
  Country: None (occurrence: None)
  Receive Date: 20100514
  Receipt Date: 20100505
  Transmission Date: 20101027
  Serious: Yes (Hospitalization)
  Sender: FDA-Public Use
  Company Number: CA-JNJFOC-20100503803

PATIENT
  Sex: Male

DRUGS (2)
  1. REMICADE [Suspect]
     Indication: CROHN'S DISEASE
     Route: 042
  2. OTHER THERAPEUTIC AGENT [Concomitant]

REACTIONS (5)
  - ABDOMINAL DISTENSION [None]
  - MUSCLE SPASMS [None]
  - PAIN [None]
  - PNEUMONIA [None]
  - VOMITING [None]
